FAERS Safety Report 7944688-7 (Version None)
Quarter: 2011Q4

REPORT INFORMATION
  Report Type: 
  Country: None (occurrence: None)
  Receive Date: 20111114
  Receipt Date: 20110830
  Transmission Date: 20120403
  Serious: No
  Sender: FDA-Public Use
  Company Number: 1000007818

PATIENT
  Age: 62 Year
  Sex: Female

DRUGS (7)
  1. RESTORIL [Concomitant]
  2. SAVELLA [Suspect]
     Indication: FIBROMYALGIA
     Dosage: SEE IMAGE
     Route: 048
     Dates: start: 20090626, end: 20090626
  3. HYDROCHLOROTHIAZIDE [Concomitant]
  4. SKELAXIN [Concomitant]
  5. TRAZODONE HCL [Suspect]
     Indication: INSOMNIA
     Dosage: 50 MG (50 MG, 1 IN 1 D), ORAL
     Route: 048
     Dates: start: 20090723
  6. OXYCODONE HCL [Concomitant]
  7. AMARYL [Concomitant]

REACTIONS (2)
  - HEART RATE INCREASED [None]
  - PAIN [None]
